FAERS Safety Report 19103631 (Version 6)
Quarter: 2023Q2

REPORT INFORMATION
  Report Type: Spontaneous
  Country: US (occurrence: US)
  Receive Date: 20210407
  Receipt Date: 20230509
  Transmission Date: 20230722
  Serious: Yes (Other)
  Sender: FDA-Public Use
  Company Number: US-PFIZER INC-2020087604

PATIENT
  Age: 88 Year
  Sex: Female
  Weight: 68.027 kg

DRUGS (5)
  1. PREMARIN [Suspect]
     Active Substance: ESTROGENS, CONJUGATED
     Indication: Urinary tract infection
     Dosage: APPLY 0.3125 MG (PEA SIZE) DAILY X2 WEEKS, THEN TWICE WEEKLY
     Route: 067
  2. PREMARIN [Suspect]
     Active Substance: ESTROGENS, CONJUGATED
     Indication: Hypertonic bladder
     Dosage: APPLY 0.3125 MG (PEA SIZE) DAILY X2 WEEKS, THEN TWICE WEEKLY
     Route: 067
  3. PREMARIN [Suspect]
     Active Substance: ESTROGENS, CONJUGATED
     Indication: Atrophic vulvovaginitis
  4. LEVOTHYROXINE [Concomitant]
     Active Substance: LEVOTHYROXINE
     Dosage: 88 UG, DAILY
     Route: 048
  5. TOVIAZ [Concomitant]
     Active Substance: FESOTERODINE FUMARATE
     Dosage: 4 MG, DAILY

REACTIONS (3)
  - Urinary tract infection [Unknown]
  - Off label use [Unknown]
  - Product use issue [Unknown]
